FAERS Safety Report 9108147 (Version 2)
Quarter: 2013Q2

REPORT INFORMATION
  Report Type: Report from Study
  Country: US (occurrence: US)
  Receive Date: 20130221
  Receipt Date: 20130404
  Transmission Date: 20140414
  Serious: Yes (Other)
  Sender: FDA-Public Use
  Company Number: US-ABBOTT-13P-163-1049919-00

PATIENT
  Sex: Female
  Weight: 83.99 kg

DRUGS (1)
  1. LUPRON DEPOT [Suspect]
     Indication: UTERINE LEIOMYOMA
     Dosage: ONE DOSE ONLY
     Route: 050

REACTIONS (2)
  - Uterine leiomyoma [Unknown]
  - Anaemia [Unknown]
